FAERS Safety Report 6823904-9 (Version None)
Quarter: 2010Q3

REPORT INFORMATION
  Report Type: 
  Country: None (occurrence: None)
  Receive Date: 20100708
  Receipt Date: 20061229
  Transmission Date: 20110219
  Serious: No
  Sender: FDA-Public Use
  Company Number: US-PFIZER INC-2006110571

PATIENT
  Sex: Male
  Weight: 97.52 kg

DRUGS (4)
  1. CHANTIX [Suspect]
     Indication: EX-TOBACCO USER
     Dates: start: 20060911
  2. ENALAPRIL MALEATE [Concomitant]
  3. LEXAPRO [Concomitant]
  4. PRILOSEC [Concomitant]

REACTIONS (1)
  - ABDOMINAL PAIN UPPER [None]
